FAERS Safety Report 4399963-2 (Version None)
Quarter: 2004Q3

REPORT INFORMATION
  Report Type: 
  Country: None (occurrence: None)
  Receive Date: 20040714
  Receipt Date: 20040630
  Transmission Date: 20050211
  Serious: No
  Sender: FDA-Public Use
  Company Number: 03H-122-0219286-00

PATIENT
  Age: 56 Year
  Sex: Male

DRUGS (3)
  1. PENTOTHAL [Suspect]
     Indication: INDUCTION OF ANAESTHESIA
     Dosage: 250 MG, INFUSION, INTRAVENOUS
     Route: 042
     Dates: start: 20030127, end: 20030127
  2. REMIFENTANIL HYDROCHLORIDE [Concomitant]
  3. DIAZEPAM [Concomitant]

REACTIONS (4)
  - ANAESTHETIC COMPLICATION [None]
  - BLOOD PRESSURE DECREASED [None]
  - ERYTHEMA [None]
  - INJECTION SITE URTICARIA [None]
